FAERS Safety Report 9695131 (Version 1)
Quarter: 2013Q4

REPORT INFORMATION
  Report Type: Spontaneous
  Country: US (occurrence: US)
  Receive Date: 20131119
  Receipt Date: 20131119
  Transmission Date: 20140711
  Serious: Yes (Other)
  Sender: FDA-Public Use
  Company Number: US-JNJFOC-20131106207

PATIENT
  Age: 51 Year
  Sex: Female

DRUGS (4)
  1. STELARA [Suspect]
     Indication: PSORIATIC ARTHROPATHY
     Route: 065
     Dates: start: 201011
  2. STELARA [Suspect]
     Indication: PSORIATIC ARTHROPATHY
     Route: 065
     Dates: start: 20130128
  3. STELARA [Suspect]
     Indication: PSORIASIS
     Route: 065
     Dates: start: 201011
  4. STELARA [Suspect]
     Indication: PSORIASIS
     Route: 065
     Dates: start: 20130128

REACTIONS (1)
  - Intracranial aneurysm [Recovered/Resolved]
